FAERS Safety Report 6454276-X (Version None)
Quarter: 2009Q4

REPORT INFORMATION
  Report Type: 
  Country: None (occurrence: None)
  Receive Date: 20091124
  Receipt Date: 20091112
  Transmission Date: 20100525
  Serious: Yes (Other)
  Sender: FDA-Public Use
  Company Number: US-PFIZER INC-2009298202

PATIENT
  Sex: Male
  Weight: 97.506 kg

DRUGS (6)
  1. NEURONTIN [Suspect]
     Indication: NEUROPATHY PERIPHERAL
     Dosage: 800 MG, 3X/DAY
     Route: 048
     Dates: start: 20070101, end: 20091101
  2. LYRICA [Suspect]
     Indication: NEUROPATHY PERIPHERAL
     Dosage: 225 MG, 2X/DAY
     Route: 048
     Dates: start: 20091101
  3. ACETYLSALICYLIC ACID [Concomitant]
     Dosage: 81 MG, 1X/DAY
     Route: 048
  4. VALSARTAN [Concomitant]
     Indication: BLOOD PRESSURE
     Dosage: 80 MG, 1X/DAY
     Route: 048
  5. PLAVIX [Concomitant]
     Dosage: 75 MG, 1X/DAY
     Route: 048
  6. METOPROLOL SUCCINATE [Concomitant]
     Dosage: 25 MG, 1X/DAY
     Route: 048

REACTIONS (3)
  - BURNING SENSATION [None]
  - DIABETES MELLITUS [None]
  - PAIN IN EXTREMITY [None]
